FAERS Safety Report 10695419 (Version 1)
Quarter: 2014Q4

REPORT INFORMATION
  Report Type: Spontaneous
  Country: US (occurrence: None)
  Receive Date: 20141223
  Receipt Date: 20141223
  Transmission Date: 20150529
  Serious: No
  Sender: FDA-Public Use
  Company Number: 1000072670

PATIENT
  Age: 81 Year
  Sex: Male

DRUGS (1)
  1. LINZESS [Suspect]
     Active Substance: LINACLOTIDE
     Indication: GASTROINTESTINAL MOTILITY DISORDER
     Dates: start: 201409, end: 201410

REACTIONS (4)
  - Abdominal distension [None]
  - Off label use [None]
  - Flatulence [None]
  - Intentional product misuse [None]

NARRATIVE: CASE EVENT DATE: 2014
